FAERS Safety Report 16217042 (Version 3)
Quarter: 2019Q3

REPORT INFORMATION
  Report Type: Spontaneous
  Country: US (occurrence: US)
  Receive Date: 20190419
  Receipt Date: 20190921
  Transmission Date: 20191004
  Serious: No
  Sender: FDA-Public Use
  Company Number: PHEH2019US016904

PATIENT
  Sex: Male

DRUGS (2)
  1. TAFINLAR [Suspect]
     Active Substance: DABRAFENIB MESYLATE
     Indication: LANGERHANS^ CELL HISTIOCYTOSIS
     Dosage: 75 MG, BID (QAM AND QPM)
     Route: 048
     Dates: start: 20180803
  2. MEKINIST [Suspect]
     Active Substance: TRAMETINIB DIMETHYL SULFOXIDE
     Indication: LANGERHANS^ CELL HISTIOCYTOSIS
     Dosage: 2 MG, QD
     Route: 048

REACTIONS (8)
  - Dermatitis acneiform [Unknown]
  - Chills [Unknown]
  - Exfoliative rash [Unknown]
  - Pyrexia [Unknown]
  - Headache [Unknown]
  - Fatigue [Unknown]
  - Nausea [Unknown]
  - Neuralgia [Unknown]
